FAERS Safety Report 6750613-7 (Version None)
Quarter: 2010Q2

REPORT INFORMATION
  Report Type: 
  Country: None (occurrence: None)
  Receive Date: 20100527
  Receipt Date: 20091130
  Transmission Date: 20101027
  Serious: Yes (Hospitalization)
  Sender: FDA-Public Use
  Company Number: IND1-NO-2009-0055

PATIENT
  Age: 63 Year
  Sex: Female

DRUGS (7)
  1. INDOCIN [Suspect]
     Indication: PROCEDURAL PAIN
     Dosage: (25 MG/TID), PER ORAL
     Route: 048
     Dates: start: 20090120, end: 20090206
  2. ALENDRONIC  ACID (ALENDRONIC ACID) [Concomitant]
  3. ASCORBIC ACID + CALCIUM PHOSPHATE [Concomitant]
  4. BUDESONIDE + FORMOTEROL FUMARATE [Concomitant]
  5. CLINDAMYCIN HYDROCHLORIDE [Concomitant]
  6. ESTRADIOL, NORETHINDRONE ACETATE [Concomitant]
  7. SOLIFENACIN SUCCINATE [Concomitant]

REACTIONS (3)
  - CHOLELITHIASIS [None]
  - CHOLESTASIS [None]
  - HEPATOTOXICITY [None]
